FAERS Safety Report 9920304 (Version 1)
Quarter: 2014Q1

REPORT INFORMATION
  Report Type: Spontaneous
  Country: IT (occurrence: IT)
  Receive Date: 20140224
  Receipt Date: 20140224
  Transmission Date: 20141002
  Serious: Yes (Other)
  Sender: FDA-Public Use
  Company Number: IT-WATSON-2014-02931

PATIENT
  Age: 61 Year
  Sex: Male

DRUGS (1)
  1. CARBOPLATIN (UNKNOWN) [Suspect]
     Indication: OROPHARYNGEAL CANCER
     Dosage: 280 MG, CYCLICAL
     Route: 042
     Dates: start: 20131129, end: 20131216

REACTIONS (1)
  - Thrombocytopenia [Recovered/Resolved]
